FAERS Safety Report 17420062 (Version 1)
Quarter: 2020Q1

REPORT INFORMATION
  Report Type: Spontaneous
  Country: US (occurrence: US)
  Receive Date: 20200214
  Receipt Date: 20200214
  Transmission Date: 20200409
  Serious: No
  Sender: FDA-Public Use
  Company Number: US-PFIZER INC-2019158982

PATIENT
  Age: 68 Year
  Sex: Male

DRUGS (1)
  1. REVATIO [Suspect]
     Active Substance: SILDENAFIL CITRATE
     Dosage: 20 MG, (REVATIO 20MG- QTY OF 270 FOR A 90 DAYS)

REACTIONS (2)
  - Off label use [Unknown]
  - Product use in unapproved indication [Unknown]
